FAERS Safety Report 7996295-8 (Version None)
Quarter: 2011Q4

REPORT INFORMATION
  Report Type: 
  Country: None (occurrence: None)
  Receive Date: 20111220
  Receipt Date: 20111216
  Transmission Date: 20120403
  Serious: Yes (Other)
  Sender: FDA-Public Use
  Company Number: FR-ROCHE-1020657

PATIENT
  Age: 49 Year
  Sex: Male

DRUGS (1)
  1. ACTEMRA [Suspect]
     Indication: RHEUMATOID ARTHRITIS
     Dates: start: 20111006, end: 20111109

REACTIONS (4)
  - VOMITING [None]
  - HYPERSENSITIVITY [None]
  - URTICARIA [None]
  - NAUSEA [None]
